FAERS Safety Report 9429114 (Version 2)
Quarter: 2013Q3

REPORT INFORMATION
  Report Type: Spontaneous
  Country: BE (occurrence: BE)
  Receive Date: 20130730
  Receipt Date: 20130806
  Transmission Date: 20140515
  Serious: Yes (Other)
  Sender: FDA-Public Use
  Company Number: BE-UCBSA-092654

PATIENT
  Age: 65 Year
  Sex: Female

DRUGS (9)
  1. CIMZIA [Suspect]
     Indication: RHEUMATOID ARTHRITIS
     Route: 058
     Dates: start: 20130401
  2. MOLIC [Concomitant]
     Indication: RHEUMATOID ARTHRITIS
     Route: 048
  3. MEDROL [Concomitant]
     Indication: RHEUMATOID ARTHRITIS
     Dosage: DOSE: 8 MG
     Route: 048
  4. LEDERTREXATE [Concomitant]
     Indication: RHEUMATOID ARTHRITIS
     Route: 058
  5. ELTHYRONE [Concomitant]
  6. DEPAKINE [Concomitant]
  7. DICLOPHENAC [Concomitant]
  8. HYPNOZAL [Concomitant]
  9. ZOCOR [Concomitant]

REACTIONS (1)
  - Deep vein thrombosis [Recovering/Resolving]
